FAERS Safety Report 9165101 (Version 1)
Quarter: 2013Q1

REPORT INFORMATION
  Report Type: Spontaneous
  Country: US (occurrence: US)
  Receive Date: 20130315
  Receipt Date: 20130315
  Transmission Date: 20140127
  Serious: Yes (Hospitalization)
  Sender: FDA-Public Use
  Company Number: US-CELGENEUS-163-21880-13031154

PATIENT
  Sex: Female

DRUGS (2)
  1. REVLIMID [Suspect]
     Indication: HODGKIN^S DISEASE
     Dosage: 25 MILLIGRAM
     Route: 048
     Dates: start: 20130107
  2. BLOOD [Concomitant]
     Indication: PRODUCT USED FOR UNKNOWN INDICATION
     Route: 041
     Dates: start: 201302

REACTIONS (2)
  - Transfusion related complication [Unknown]
  - Platelet count decreased [Unknown]
